FAERS Safety Report 19379365 (Version 3)
Quarter: 2021Q3

REPORT INFORMATION
  Report Type: Spontaneous
  Country: US (occurrence: US)
  Receive Date: 20210607
  Receipt Date: 20210825
  Transmission Date: 20211014
  Serious: Yes (Other)
  Sender: FDA-Public Use
  Company Number: US-SA-2021SA184827

PATIENT
  Age: 34 Year
  Sex: Male

DRUGS (2)
  1. DUPIXENT [Suspect]
     Active Substance: DUPILUMAB
     Dosage: 300 MG/ 2ML, QOW
     Route: 058
     Dates: start: 2021
  2. DUPIXENT [Suspect]
     Active Substance: DUPILUMAB
     Indication: NEURODERMATITIS
     Dosage: 600MG, 1X
     Route: 058
     Dates: start: 202104, end: 202104

REACTIONS (4)
  - Diabetes mellitus [Recovered/Resolved]
  - Blister [Unknown]
  - Therapeutic response shortened [Unknown]
  - Injection site vesicles [Unknown]

NARRATIVE: CASE EVENT DATE: 2021
